FAERS Safety Report 25618094 (Version 1)
Quarter: 2025Q3

REPORT INFORMATION
  Report Type: Spontaneous
  Country: CA (occurrence: CA)
  Receive Date: 20250729
  Receipt Date: 20250729
  Transmission Date: 20251021
  Serious: Yes (Hospitalization, Other)
  Sender: FRESENIUS KABI
  Company Number: CA-FreseniusKabi-FK202510237

PATIENT
  Age: 69 Year
  Sex: Male
  Weight: 149 kg

DRUGS (1)
  1. PIPERACILLIN AND TAZOBACTAM [Suspect]
     Active Substance: PIPERACILLIN SODIUM\TAZOBACTAM SODIUM
     Indication: Cellulite
     Dosage: FOA: POWDER FOR SOLUTION INTRAVENOUS

REACTIONS (5)
  - Acute kidney injury [Recovering/Resolving]
  - Dyspnoea [Recovering/Resolving]
  - General physical health deterioration [Recovering/Resolving]
  - Rash [Recovering/Resolving]
  - Tubulointerstitial nephritis [Recovering/Resolving]
